FAERS Safety Report 6385676-4 (Version None)
Quarter: 2009Q4

REPORT INFORMATION
  Report Type: 
  Country: None (occurrence: None)
  Receive Date: 20091002
  Receipt Date: 20081022
  Transmission Date: 20100525
  Serious: No
  Sender: FDA-Public Use
  Company Number: US-ASTRAZENECA-2008UW23503

PATIENT
  Sex: Female

DRUGS (7)
  1. ARIMIDEX [Suspect]
     Indication: BREAST CANCER STAGE I
     Route: 048
     Dates: start: 20050101
  2. LEXAPRO [Concomitant]
  3. LIPITOR [Concomitant]
  4. LEVOXYL [Concomitant]
  5. LOTREL [Concomitant]
  6. CALCIUM CITRATE [Concomitant]
  7. ASPIRIN [Concomitant]

REACTIONS (5)
  - CELLULITIS [None]
  - HYPERTENSION [None]
  - ILL-DEFINED DISORDER [None]
  - LYMPHADENITIS [None]
  - RASH [None]
